FAERS Safety Report 6845638-7 (Version None)
Quarter: 2010Q3

REPORT INFORMATION
  Report Type: 
  Country: None (occurrence: None)
  Receive Date: 20100715
  Receipt Date: 20071126
  Transmission Date: 20110219
  Serious: No
  Sender: FDA-Public Use
  Company Number: US-PFIZER INC-2007070585

PATIENT
  Sex: Female
  Weight: 81.6 kg

DRUGS (3)
  1. CHANTIX [Suspect]
     Indication: SMOKING CESSATION THERAPY
     Dates: start: 20070628
  2. LIPITOR [Concomitant]
  3. DIOVAN HCT [Concomitant]

REACTIONS (5)
  - ABDOMINAL DISCOMFORT [None]
  - ABNORMAL DREAMS [None]
  - DYSGEUSIA [None]
  - INSOMNIA [None]
  - OROPHARYNGEAL DISCOMFORT [None]
